FAERS Safety Report 17039474 (Version 1)
Quarter: 2019Q4

REPORT INFORMATION
  Report Type: Spontaneous
  Country: DE (occurrence: DE)
  Receive Date: 20191115
  Receipt Date: 20191115
  Transmission Date: 20200122
  Serious: Yes (Hospitalization)
  Sender: FDA-Public Use
  Company Number: DE-SAMSUNG BIOEPIS-SB-2019-33706

PATIENT
  Age: 66 Year
  Sex: Male

DRUGS (1)
  1. IMRALDI [Suspect]
     Active Substance: ADALIMUMAB
     Indication: CROHN^S DISEASE
     Route: 058
     Dates: start: 20190316, end: 20191014

REACTIONS (3)
  - Pneumonia [Unknown]
  - Sepsis [Unknown]
  - Sarcopenia [Unknown]

NARRATIVE: CASE EVENT DATE: 20191016
